FAERS Safety Report 4808636-0 (Version None)
Quarter: 2005Q4

REPORT INFORMATION
  Report Type: 
  Country: None (occurrence: None)
  Receive Date: 20051021
  Receipt Date: 20040621
  Transmission Date: 20060501
  Serious: No
  Sender: FDA-Public Use
  Company Number: AU_040607860

PATIENT
  Age: 20 Year
  Sex: Female
  Weight: 75 kg

DRUGS (2)
  1. ZYPREXA [Suspect]
     Route: 048
  2. RISPERIDONE [Concomitant]

REACTIONS (2)
  - NEUTROPENIA [None]
  - WEIGHT INCREASED [None]
